FAERS Safety Report 4698961-9 (Version None)
Quarter: 2005Q2

REPORT INFORMATION
  Report Type: 
  Country: None (occurrence: None)
  Receive Date: 20050622
  Receipt Date: 20050622
  Transmission Date: 20051028
  Serious: Yes (Life-Threatening)
  Sender: FDA-Public Use
  Company Number: None

PATIENT
  Age: 42 Year
  Sex: Female
  Weight: 60.2 kg

DRUGS (2)
  1. FENTANYL [Suspect]
     Indication: PAIN
     Dosage: 400MCG TOTAL    OVER 30 MINUTE    INTRAVENOU
     Route: 042
     Dates: start: 20050412, end: 20050412
  2. HYDROMORPHONE HCL [Suspect]
     Indication: PAIN
     Dosage: 0.2MG/H    INTRAVENOU
     Route: 042
     Dates: start: 20050412, end: 20050412

REACTIONS (8)
  - ACUTE MYOCARDIAL INFARCTION [None]
  - CYANOSIS [None]
  - DRUG ADMINISTRATION ERROR [None]
  - INCORRECT DOSE ADMINISTERED [None]
  - LOSS OF CONSCIOUSNESS [None]
  - MEDICATION ERROR [None]
  - OVERDOSE [None]
  - RESPIRATORY ARREST [None]
